FAERS Safety Report 7382977-8 (Version None)
Quarter: 2011Q1

REPORT INFORMATION
  Report Type: 
  Country: None (occurrence: None)
  Receive Date: 20110330
  Receipt Date: 20110315
  Transmission Date: 20110831
  Serious: Yes (Hospitalization)
  Sender: FDA-Public Use
  Company Number: PL-RANBAXY-2011RR-43266

PATIENT
  Age: 61 Year
  Sex: Male
  Weight: 107 kg

DRUGS (20)
  1. DIGOXIN [Concomitant]
     Dosage: 0.125 MG, QD
  2. TIOTROPIUM BROMIDE [Concomitant]
     Dosage: 10 UG, QD
  3. DIGOXIN [Concomitant]
     Dosage: 0.1 MG, QD
  4. RAMIPRIL [Concomitant]
     Dosage: 5 MG, QD
  5. ISOSORBIDE MONONITRATE [Concomitant]
     Dosage: 50 MG, QD
  6. AMOXICILLIN AND CLAVULANATE POTASSIUM [Suspect]
     Indication: PNEUMONIA
     Dosage: 1.2 G, BID
     Route: 042
  7. CARBOCISTEINE [Concomitant]
     Dosage: 15 ML, BID
  8. ALLOPURINOL [Concomitant]
     Dosage: 100 MG, BID
  9. BISOPROLOL [Concomitant]
     Dosage: 10 MG, QD
  10. GLIMEPIRIDE [Concomitant]
     Dosage: 2 MG, QD
  11. TICLOPIDINE HCL [Concomitant]
     Dosage: 250 MG, BID
  12. FUROSEMIDE [Concomitant]
     Dosage: 20 MG, BID
  13. OXAZEPAM [Concomitant]
     Dosage: 10 MG, QD
  14. ESSENTIALES FORTE [Concomitant]
     Dosage: UNK
     Route: 048
  15. CLOPIDOGREL [Concomitant]
     Dosage: 75 MG, QD
  16. BETAXOLOL [Concomitant]
     Dosage: 20 MG, QD
  17. THEOPHILLINE [Concomitant]
     Dosage: 150 MG, QD
  18. MOLSIDOMIDE [Concomitant]
     Dosage: 4 MG, QD
  19. FOLIC ACID [Concomitant]
     Dosage: 15 MG, TID
  20. AMOXICILLIN AND CLAVULANATE POTASSIUM [Suspect]
     Indication: PNEUMONIA
     Dosage: 625 MG, TID
     Route: 048

REACTIONS (1)
  - HEPATOTOXICITY [None]
